FAERS Safety Report 13133483 (Version 1)
Quarter: 2017Q1

REPORT INFORMATION
  Report Type: Spontaneous
  Country: US (occurrence: US)
  Receive Date: 20170110
  Receipt Date: 20170110
  Transmission Date: 20170428
  Serious: Yes (Other)
  Sender: FDA-Public Use
  Company Number: None

PATIENT
  Age: 83 Year
  Sex: Female
  Weight: 49.94 kg

DRUGS (7)
  1. FISH OIL [Concomitant]
     Active Substance: FISH OIL
  2. SERTRALINE [Concomitant]
     Active Substance: SERTRALINE HYDROCHLORIDE
  3. TRAZODONE [Concomitant]
     Active Substance: TRAZODONE HYDROCHLORIDE
  4. CALCIUM + D [Concomitant]
     Active Substance: CALCIUM\VITAMIN D
  5. COQ10 [Concomitant]
     Active Substance: UBIDECARENONE
  6. LYRICA [Suspect]
     Active Substance: PREGABALIN
     Indication: NERVE INJURY
     Dosage: 3-4 WEEKS LATER
     Route: 048
     Dates: start: 20160527
  7. PROBIOTIC [Concomitant]
     Active Substance: PROBIOTICS NOS

REACTIONS (2)
  - Face injury [None]
  - Fall [None]

NARRATIVE: CASE EVENT DATE: 20160617
